FAERS Safety Report 23713271 (Version 1)
Quarter: 2024Q2

REPORT INFORMATION
  Report Type: Spontaneous
  Country: US (occurrence: None)
  Receive Date: 20240404
  Receipt Date: 20240404
  Transmission Date: 20240715
  Serious: No
  Sender: FDA-Public Use
  Company Number: None

PATIENT
  Age: 29 Year
  Sex: Female
  Weight: 123.5 kg

DRUGS (1)
  1. OMIDUBICEL [Suspect]
     Active Substance: OMIDUBICEL

REACTIONS (4)
  - Abdominal pain [None]
  - Abdominal distension [None]
  - Urine output decreased [None]
  - Dialysis [None]

NARRATIVE: CASE EVENT DATE: 20240316
